FAERS Safety Report 14273841 (Version 1)
Quarter: 2017Q4

REPORT INFORMATION
  Report Type: Other
  Country: CN (occurrence: CN)
  Receive Date: 20171211
  Receipt Date: 20171211
  Transmission Date: 20180321
  Serious: Yes (Hospitalization)
  Sender: FDA-Public Use
  Company Number: CN-B. BRAUN MEDICAL INC.-2037019

PATIENT
  Age: 65 Year
  Sex: Female

DRUGS (11)
  1. LIDOCAINE. [Concomitant]
     Active Substance: LIDOCAINE
     Route: 008
  2. VITAMIN B6 [Concomitant]
     Active Substance: PYRIDOXINE HYDROCHLORIDE
     Route: 008
  3. AMOXICILLIN. [Concomitant]
     Active Substance: AMOXICILLIN
     Route: 048
  4. NIFEDIPINE EXTENDED-RELEASE [Concomitant]
     Active Substance: NIFEDIPINE
     Route: 048
  5. MECOBALAMINE [Concomitant]
     Active Substance: METHYLCOBALAMIN
     Route: 008
  6. FAMCICLOVIR. [Concomitant]
     Active Substance: FAMCICLOVIR
  7. DEXAMETHASONE. [Concomitant]
     Active Substance: DEXAMETHASONE
     Route: 008
  8. VITAMIN B1 [Concomitant]
     Active Substance: THIAMINE HYDROCHLORIDE
     Route: 008
  9. MANNITOL. [Concomitant]
     Active Substance: MANNITOL
     Route: 041
  10. SODIUM CHLORIDE. [Suspect]
     Active Substance: SODIUM CHLORIDE
     Indication: SPINAL OSTEOARTHRITIS
     Route: 008
  11. LOXOPROFEN [Concomitant]
     Active Substance: LOXOPROFEN
     Route: 048

REACTIONS (2)
  - Extradural abscess [None]
  - Abscess neck [None]
